FAERS Safety Report 5128971-9 (Version None)
Quarter: 2006Q4

REPORT INFORMATION
  Report Type: 
  Country: None (occurrence: None)
  Receive Date: 20061016
  Receipt Date: 20061016
  Transmission Date: 20070319
  Serious: Yes (Hospitalization)
  Sender: FDA-Public Use
  Company Number: None

PATIENT
  Age: 83 Year
  Sex: Male
  Weight: 71.6683 kg

DRUGS (10)
  1. LEVOFLOXACIN [Suspect]
     Indication: URINARY TRACT INFECTION
     Dosage: 250 MG DAILY IV
     Route: 042
     Dates: start: 20060930, end: 20061007
  2. ACETAMINOPHEN [Concomitant]
  3. ASPIRIN [Concomitant]
  4. FELODIPINE [Concomitant]
  5. FUROSEMIDE [Concomitant]
  6. GEMFIBROZIL [Concomitant]
  7. METOPROLOL [Concomitant]
  8. SEVELMAR [Concomitant]
  9. SIMVASTATIN [Concomitant]
  10. SODIUM BICARBONATE [Concomitant]

REACTIONS (1)
  - CLOSTRIDIAL INFECTION [None]
